FAERS Safety Report 8586595 (Version 3)
Quarter: 2013Q1

REPORT INFORMATION
  Report Type: Spontaneous
  Country: US (occurrence: US)
  Receive Date: 20120530
  Receipt Date: 20130218
  Transmission Date: 20140127
  Serious: Yes (Hospitalization)
  Sender: FDA-Public Use
  Company Number: US-ELI_LILLY_AND_COMPANY-US201205007604

PATIENT
  Age: 78 Year
  Sex: Female

DRUGS (1)
  1. FORTEO [Suspect]
     Dosage: 20 UG, QD
     Dates: start: 20111011

REACTIONS (6)
  - Kidney infection [Unknown]
  - Viral infection [Unknown]
  - Urinary tract infection [Unknown]
  - Dysuria [Unknown]
  - Malaise [Unknown]
  - Influenza [Not Recovered/Not Resolved]
